FAERS Safety Report 7315569-7 (Version None)
Quarter: 2011Q1

REPORT INFORMATION
  Report Type: 
  Country: None (occurrence: None)
  Receive Date: 20110225
  Receipt Date: 20110225
  Transmission Date: 20110831
  Serious: Yes (Hospitalization, Other)
  Sender: FDA-Public Use
  Company Number: GB-ELI_LILLY_AND_COMPANY-GB201007001033

PATIENT
  Sex: Male
  Weight: 87 kg

DRUGS (5)
  1. CISPLATIN [Suspect]
     Dosage: 115 MG, OTHER
     Route: 042
     Dates: start: 20100714
  2. GEMCITABINE HYDROCHLORIDE [Suspect]
     Indication: NON-SMALL CELL LUNG CANCER
     Dosage: 2584 MG, 2 IN 3 WEEKS
     Route: 042
     Dates: start: 20100609, end: 20100616
  3. VITAMIN B-12 [Concomitant]
     Dosage: UNK, OTHER
     Dates: start: 20050102
  4. CISPLATIN [Suspect]
     Indication: NON-SMALL CELL LUNG CANCER
     Dosage: 155 MG, 1 IN 3 WEEKS
     Route: 042
     Dates: start: 20100609, end: 20100609
  5. GEMCITABINE HYDROCHLORIDE [Suspect]
     Dosage: 1976 MG, UNK
     Dates: start: 20100714

REACTIONS (3)
  - HAEMOGLOBIN DECREASED [None]
  - NEUTROPENIC SEPSIS [None]
  - PLATELET COUNT DECREASED [None]
